FAERS Safety Report 19855739 (Version 1)
Quarter: 2021Q3

REPORT INFORMATION
  Report Type: Spontaneous
  Country: US (occurrence: US)
  Receive Date: 20210920
  Receipt Date: 20210920
  Transmission Date: 20211014
  Serious: Yes (Hospitalization)
  Sender: FDA-Public Use
  Company Number: None

PATIENT
  Sex: Male
  Weight: 87.75 kg

DRUGS (22)
  1. VESICARE [Concomitant]
     Active Substance: SOLIFENACIN SUCCINATE
  2. METOPROLOL TARTRATE. [Concomitant]
     Active Substance: METOPROLOL TARTRATE
  3. ANORO ELLIPTA [Concomitant]
     Active Substance: UMECLIDINIUM BROMIDE\VILANTEROL TRIFENATATE
  4. BACLOFEN. [Concomitant]
     Active Substance: BACLOFEN
  5. COPIKTRA [Suspect]
     Active Substance: DUVELISIB
     Indication: CHRONIC LYMPHOCYTIC LEUKAEMIA
     Route: 048
  6. CRESTOR [Concomitant]
     Active Substance: ROSUVASTATIN CALCIUM
  7. ASPIRIN 81 [Concomitant]
     Active Substance: ASPIRIN
  8. TRULICITY [Concomitant]
     Active Substance: DULAGLUTIDE
  9. PREVACID [Concomitant]
     Active Substance: LANSOPRAZOLE
  10. CHLORTHALIDONE. [Concomitant]
     Active Substance: CHLORTHALIDONE
  11. LASIX [Concomitant]
     Active Substance: FUROSEMIDE
  12. PLAVIX [Concomitant]
     Active Substance: CLOPIDOGREL BISULFATE
  13. LOSARTAN POTASSIUM. [Concomitant]
     Active Substance: LOSARTAN POTASSIUM
  14. TRELEGY ELLIPTA [Concomitant]
     Active Substance: FLUTICASONE FUROATE\UMECLIDINIUM BROMIDE\VILANTEROL TRIFENATATE
  15. FERROUS SULFATE. [Concomitant]
     Active Substance: FERROUS SULFATE
  16. ACYCLOVIR. [Concomitant]
     Active Substance: ACYCLOVIR
  17. NORVASC [Concomitant]
     Active Substance: AMLODIPINE BESYLATE
  18. NEURONTIN [Concomitant]
     Active Substance: GABAPENTIN
  19. KLOR?CON M20 [Concomitant]
     Active Substance: POTASSIUM CHLORIDE
  20. FLECTOR [Concomitant]
     Active Substance: DICLOFENAC EPOLAMINE
  21. GLIPIZIDE. [Concomitant]
     Active Substance: GLIPIZIDE
  22. GAZYVA [Concomitant]
     Active Substance: OBINUTUZUMAB

REACTIONS (1)
  - Hospitalisation [None]
